FAERS Safety Report 20921515 (Version 1)
Quarter: 2022Q2

REPORT INFORMATION
  Report Type: Report from Study
  Country: US (occurrence: US)
  Receive Date: 20220606
  Receipt Date: 20220606
  Transmission Date: 20220720
  Serious: Yes (Hospitalization, Other)
  Sender: FDA-Public Use
  Company Number: US-BoehringerIngelheim-2021-BI-079091

PATIENT
  Age: 68 Year
  Sex: Female

DRUGS (2)
  1. OFEV [Suspect]
     Active Substance: NINTEDANIB
     Indication: Idiopathic pulmonary fibrosis
     Route: 048
     Dates: start: 20200713
  2. OFEV [Suspect]
     Active Substance: NINTEDANIB
     Route: 048
     Dates: start: 20210202

REACTIONS (26)
  - Pneumonia [Recovered/Resolved]
  - Pneumonia [Unknown]
  - Liver disorder [Unknown]
  - Pulmonary oedema [Unknown]
  - Oxygen saturation decreased [Unknown]
  - Sinusitis [Unknown]
  - Hepatic enzyme increased [Recovered/Resolved]
  - Constipation [Recovered/Resolved]
  - Malaise [Recovering/Resolving]
  - Cough [Recovering/Resolving]
  - Dyspnoea [Recovering/Resolving]
  - Heart rate increased [Not Recovered/Not Resolved]
  - Haemoptysis [Recovering/Resolving]
  - Sputum discoloured [Recovering/Resolving]
  - Blood magnesium decreased [Unknown]
  - Blood potassium decreased [Unknown]
  - Liver function test increased [Unknown]
  - Dry eye [Unknown]
  - Vision blurred [Unknown]
  - Insomnia [Unknown]
  - Liver function test abnormal [Unknown]
  - Multiple allergies [Not Recovered/Not Resolved]
  - Constipation [Unknown]
  - Abdominal pain [Unknown]
  - Drug intolerance [Unknown]
  - Seasonal allergy [Unknown]

NARRATIVE: CASE EVENT DATE: 20210101
